FAERS Safety Report 6045843-6 (Version None)
Quarter: 2009Q1

REPORT INFORMATION
  Report Type: 
  Country: None (occurrence: None)
  Receive Date: 20090121
  Receipt Date: 20090119
  Transmission Date: 20090719
  Serious: Yes (Death)
  Sender: FDA-Public Use
  Company Number: JP-B.I. PHARMACEUTICALS,INC./RIDGEFIELD-2009-BP-00686YA

PATIENT
  Age: 68 Year
  Sex: Male
  Weight: 49 kg

DRUGS (3)
  1. TAMSULOSIN HCL [Suspect]
     Indication: PROSTATE CANCER
     Route: 048
  2. BICALUTAMIDE [Suspect]
     Indication: PROSTATE CANCER
     Route: 065
  3. LEUPROLIDE ACETATE [Suspect]
     Indication: PROSTATE CANCER
     Route: 065

REACTIONS (1)
  - INTERSTITIAL LUNG DISEASE [None]
